FAERS Safety Report 11142367 (Version 1)
Quarter: 2015Q2

REPORT INFORMATION
  Report Type: Spontaneous
  Country: US (occurrence: US)
  Receive Date: 20150527
  Receipt Date: 20150527
  Transmission Date: 20150821
  Serious: No
  Sender: FDA-Public Use
  Company Number: US-MALLINCKRODT-QSC-2014-0473

PATIENT
  Age: 51 Year
  Sex: Male

DRUGS (3)
  1. H.P. ACTHAR [Suspect]
     Active Substance: CORTICOTROPIN
     Indication: CHRONIC KIDNEY DISEASE
     Dosage: 80 UNITS, BIW
     Route: 058
     Dates: start: 20140711
  2. COMBID                             /00122301/ [Concomitant]
     Dosage: 25MG, UNK
  3. PREDNISONE. [Concomitant]
     Active Substance: PREDNISONE
     Dosage: UNK
     Dates: end: 201407

REACTIONS (3)
  - Insomnia [Not Recovered/Not Resolved]
  - Pollakiuria [Recovered/Resolved]
  - Feeling jittery [Unknown]

NARRATIVE: CASE EVENT DATE: 201407
